FAERS Safety Report 8647027 (Version 3)
Quarter: 2013Q1

REPORT INFORMATION
  Report Type: Spontaneous
  Country: BR (occurrence: BR)
  Receive Date: 20120703
  Receipt Date: 20130123
  Transmission Date: 20140127
  Serious: Yes (Death, Hospitalization, Other)
  Sender: FDA-Public Use
  Company Number: PHHY2012BR054258

PATIENT
  Age: 36 Year
  Sex: Male
  Weight: 67 kg

DRUGS (7)
  1. SANDOSTATIN LAR [Suspect]
     Indication: CARCINOID SYNDROME
     Dosage: 20 MG, 1 APPLICATION PER MONTH
     Dates: end: 20120605
  2. SANDOSTATIN LAR [Suspect]
     Indication: NEUROENDOCRINE TUMOUR
     Dosage: 30 MG, UNK
     Route: 030
  3. SANDOSTATIN [Concomitant]
     Dosage: 20 MG
     Route: 058
     Dates: start: 201206
  4. SANDOSTATIN [Concomitant]
     Dosage: 20 MG
     Route: 058
  5. TYLEX [Concomitant]
     Indication: PAIN
     Dosage: 1 DF, PRN
  6. TRAMAL [Concomitant]
     Dosage: 1 DF, UNK
  7. CARVEDILOL [Concomitant]
     Indication: HYPERTENSION
     Dosage: 1 DF, DAILY
     Route: 048
     Dates: start: 2006

REACTIONS (12)
  - Cardio-respiratory arrest [Fatal]
  - Dyspnoea [Unknown]
  - Asthenia [Unknown]
  - Flushing [Recovered/Resolved]
  - Fluid retention [Recovered/Resolved]
  - Swelling face [Recovered/Resolved]
  - Malaise [Unknown]
  - Agitation [Recovered/Resolved]
  - Nervousness [Recovered/Resolved]
  - Diarrhoea [Recovered/Resolved]
  - Pleural effusion [Recovered/Resolved]
  - Cardiac disorder [Unknown]
